FAERS Safety Report 11148954 (Version 1)
Quarter: 2015Q2

REPORT INFORMATION
  Report Type: Spontaneous
  Country: US (occurrence: US)
  Receive Date: 20150529
  Receipt Date: 20150529
  Transmission Date: 20150821
  Serious: Yes (Other)
  Sender: FDA-Public Use
  Company Number: PHHY2015US010045

PATIENT
  Sex: Male

DRUGS (10)
  1. LIORESAL [Suspect]
     Active Substance: BACLOFEN
     Dosage: 50 UG/BOLUS
     Route: 037
  2. LEXAPRO [Suspect]
     Active Substance: ESCITALOPRAM OXALATE
     Indication: PRODUCT USED FOR UNKNOWN INDICATION
     Route: 048
  3. CARBAMAZEPINE. [Suspect]
     Active Substance: CARBAMAZEPINE
     Indication: SEIZURE
     Route: 065
  4. LIORESAL [Suspect]
     Active Substance: BACLOFEN
     Dosage: 30 UG/BOLUS
     Route: 037
  5. LIORESAL [Suspect]
     Active Substance: BACLOFEN
     Dosage: 931.8 UG, PER DAY
     Route: 037
  6. LIORESAL [Suspect]
     Active Substance: BACLOFEN
     Dosage: 1017.7 UG, QD
     Route: 037
  7. VIMPAT [Suspect]
     Active Substance: LACOSAMIDE
     Indication: SEIZURE
     Route: 065
  8. EFFEXOR XR [Concomitant]
     Active Substance: VENLAFAXINE HYDROCHLORIDE
     Indication: PRODUCT USED FOR UNKNOWN INDICATION
     Dosage: 75 MG, QD
     Route: 065
  9. LIORESAL [Suspect]
     Active Substance: BACLOFEN
     Indication: MUSCLE SPASTICITY
     Dosage: 968.7 UG, QD
     Route: 037
  10. EFFEXOR XR [Concomitant]
     Active Substance: VENLAFAXINE HYDROCHLORIDE
     Dosage: UNK (INCREASED DOSE)
     Route: 065

REACTIONS (17)
  - Sleep disorder [Unknown]
  - Pollakiuria [Unknown]
  - Headache [Unknown]
  - Memory impairment [Unknown]
  - Dizziness [Unknown]
  - Micturition urgency [Unknown]
  - Asterixis [Unknown]
  - Vision blurred [Unknown]
  - Resting tremor [Unknown]
  - Somnolence [Unknown]
  - Asthenia [Unknown]
  - Tremor [Recovered/Resolved]
  - Urinary retention [Unknown]
  - Seizure [Unknown]
  - Drug withdrawal syndrome [Recovered/Resolved]
  - Mood altered [Unknown]
  - Lethargy [Unknown]
